FAERS Safety Report 8326371-1 (Version None)
Quarter: 2012Q2

REPORT INFORMATION
  Report Type: 
  Country: None (occurrence: None)
  Receive Date: 20120501
  Receipt Date: 20120423
  Transmission Date: 20120825
  Serious: Yes (Hospitalization, Other)
  Sender: FDA-Public Use
  Company Number: US-MUTUAL PHARMACEUTICAL COMPANY, INC.-CSPD20120001

PATIENT
  Age: 34 Year
  Sex: Male

DRUGS (1)
  1. CARISOPRODOL [Suspect]
     Route: 042

REACTIONS (3)
  - PULMONARY EMBOLISM [None]
  - DRUG ABUSE [None]
  - PULMONARY HYPERTENSION [None]
